FAERS Safety Report 8470794-7 (Version None)
Quarter: 2012Q2

REPORT INFORMATION
  Report Type: 
  Country: None (occurrence: None)
  Receive Date: 20120323
  Receipt Date: 20111216
  Transmission Date: 20120825
  Serious: Yes (Hospitalization)
  Sender: FDA-Public Use
  Company Number: 163-21880-11101428

PATIENT
  Age: 76 Year
  Sex: Female
  Weight: 61.7 kg

DRUGS (3)
  1. REVLIMID [Suspect]
     Indication: MULTIPLE MYELOMA
     Dosage: 10 MG, 1 IN 1 D, PO
     Route: 048
     Dates: start: 20081107, end: 20111004
  2. METHADONE HCL [Concomitant]
  3. COUMADIN [Concomitant]

REACTIONS (1)
  - CELLULITIS [None]
